FAERS Safety Report 5804755-0 (Version None)
Quarter: 2008Q3

REPORT INFORMATION
  Report Type: 
  Country: None (occurrence: None)
  Receive Date: 20080709
  Receipt Date: 20080701
  Transmission Date: 20090109
  Serious: Yes (Other)
  Sender: FDA-Public Use
  Company Number: SE-JNJFOC-20080401537

PATIENT
  Age: 29 Year
  Sex: Female

DRUGS (9)
  1. CONCERTA [Suspect]
     Route: 048
  2. CONCERTA [Suspect]
     Route: 048
  3. CONCERTA [Suspect]
     Indication: ATTENTION DEFICIT/HYPERACTIVITY DISORDER
     Route: 048
  4. XANOR [Suspect]
     Indication: DRUG USE FOR UNKNOWN INDICATION
     Route: 065
  5. HALDOL [Concomitant]
     Route: 065
  6. LYRICA [Concomitant]
     Route: 065
  7. ZOLPIDEM TARTRATE [Concomitant]
     Route: 065
  8. PROPAVAN [Concomitant]
     Route: 065
  9. FLUOXETINE [Concomitant]
     Route: 065

REACTIONS (1)
  - MUSCLE SPASMS [None]
